APPROVED DRUG PRODUCT: AKINETON
Active Ingredient: BIPERIDEN HYDROCHLORIDE
Strength: 2MG
Dosage Form/Route: TABLET;ORAL
Application: N012003 | Product #001
Applicant: ABBVIE INC
Approved: Approved Prior to Jan 1, 1982 | RLD: No | RS: No | Type: DISCN